FAERS Safety Report 6440650-4 (Version None)
Quarter: 2009Q4

REPORT INFORMATION
  Report Type: 
  Country: None (occurrence: None)
  Receive Date: 20091116
  Receipt Date: 20091109
  Transmission Date: 20100525
  Serious: Yes (Life-Threatening, Other)
  Sender: FDA-Public Use
  Company Number: PHEH2009US09420

PATIENT
  Sex: Female
  Weight: 65.2 kg

DRUGS (8)
  1. GLEEVEC [Suspect]
     Indication: CHRONIC MYELOID LEUKAEMIA
     Dosage: 200 MG, BID
     Route: 048
     Dates: start: 20090611, end: 20090723
  2. FELODIPINE [Suspect]
     Dosage: 2.5 MG, QD
     Route: 048
     Dates: end: 20090701
  3. BENAZEPRIL HYDROCHLORIDE [Suspect]
     Dosage: UNK, UNK
     Route: 065
     Dates: end: 20090701
  4. HYDROCHLOROTHIAZIDE [Concomitant]
     Dosage: 25 MG, QD
     Route: 048
  5. ATORVASTATIN [Concomitant]
     Dosage: 80 MG, QD
     Route: 048
  6. METOPROLOL TARTRATE [Concomitant]
     Dosage: 25 MG, BID
     Route: 048
  7. ASPIRIN [Concomitant]
     Dosage: 81 MG, QD
     Route: 048
  8. NILOTINIB [Concomitant]
     Dosage: UNK, UNK
     Route: 065
     Dates: start: 20091030

REACTIONS (10)
  - ANGIOEDEMA [None]
  - APHASIA [None]
  - COMPLEMENT FACTOR ABNORMAL [None]
  - DYSPHAGIA [None]
  - DYSPNOEA [None]
  - EYE SWELLING [None]
  - HYPOTENSION [None]
  - RASH [None]
  - SWOLLEN TONGUE [None]
  - WHEEZING [None]
